FAERS Safety Report 8119121-5 (Version None)
Quarter: 2012Q1

REPORT INFORMATION
  Report Type: 
  Country: None (occurrence: None)
  Receive Date: 20120207
  Receipt Date: 20120207
  Transmission Date: 20120608
  Serious: Yes (Hospitalization, Congenital Anomaly, Other)
  Sender: FDA-Public Use
  Company Number: None

PATIENT
  Age: 77 Year
  Sex: Female
  Weight: 90.718 kg

DRUGS (3)
  1. ABILIFY [Suspect]
     Indication: MENTAL DISORDER
     Dosage: 30
     Route: 048
     Dates: start: 19850509, end: 20110921
  2. BUSPAR [Concomitant]
     Indication: MENTAL DISORDER
     Dosage: 50
     Route: 048
     Dates: start: 20111126, end: 20120204
  3. WELLBUTRIN [Concomitant]

REACTIONS (2)
  - DEAFNESS [None]
  - BLINDNESS [None]
